FAERS Safety Report 9288054 (Version 4)
Quarter: 2013Q3

REPORT INFORMATION
  Report Type: Spontaneous
  Country: US (occurrence: US)
  Receive Date: 20130514
  Receipt Date: 20130716
  Transmission Date: 20140515
  Serious: Yes (Other)
  Sender: FDA-Public Use
  Company Number: US-JNJFOC-20130504800

PATIENT
  Age: 54 Year
  Sex: Female
  Weight: 113.4 kg

DRUGS (12)
  1. REMICADE [Suspect]
     Indication: RHEUMATOID ARTHRITIS
     Route: 042
     Dates: end: 201110
  2. LYRICA [Concomitant]
     Indication: ARTHRITIS
     Route: 048
  3. METHOTREXATE [Concomitant]
     Indication: RHEUMATOID ARTHRITIS
     Route: 065
     Dates: end: 201110
  4. METHOTREXATE [Concomitant]
     Indication: RHEUMATOID ARTHRITIS
     Route: 065
     Dates: start: 201304
  5. CALCIUM [Concomitant]
     Route: 065
  6. ABILIFY [Concomitant]
     Route: 065
  7. ATORVASTATIN [Concomitant]
     Route: 065
  8. PIROXICAM [Concomitant]
     Route: 065
  9. FLUOXETINE [Concomitant]
     Route: 065
  10. CYMBALTA [Concomitant]
     Route: 065
  11. ALENDRONATE [Concomitant]
     Route: 065
  12. AMITRIPTYLINE [Concomitant]
     Route: 065

REACTIONS (2)
  - Neuroendocrine carcinoma of the skin [Not Recovered/Not Resolved]
  - Expired drug administered [Unknown]
